FAERS Safety Report 14606752 (Version 1)
Quarter: 2018Q1

REPORT INFORMATION
  Report Type: Report from Study
  Country: ES (occurrence: ES)
  Receive Date: 20180307
  Receipt Date: 20180307
  Transmission Date: 20180509
  Serious: Yes (Hospitalization)
  Sender: FDA-Public Use
  Company Number: ES-AXELLIA-001447

PATIENT
  Age: 12 Year
  Sex: Female

DRUGS (3)
  1. METRONIDAZOLE. [Suspect]
     Active Substance: METRONIDAZOLE
     Indication: BRAIN ABSCESS
     Dosage: DOSE: 315 MG, THREE TIMES A DAY
     Route: 042
     Dates: start: 20161224, end: 20170119
  2. VANCOMYCIN [Suspect]
     Active Substance: VANCOMYCIN
     Indication: BRAIN ABSCESS
     Dosage: DOSE: 630 MG, FOUR TIMES A DAY
     Route: 042
     Dates: start: 20161224, end: 20170119
  3. CEFOTAXIME [Suspect]
     Active Substance: CEFOTAXIME SODIUM
     Indication: BRAIN ABSCESS
     Dosage: DOSE: 2 G, TWICE PER DAY
     Route: 042
     Dates: start: 20161224, end: 20170119

REACTIONS (2)
  - Agranulocytosis [Recovered/Resolved]
  - Hypertransaminasaemia [Recovering/Resolving]

NARRATIVE: CASE EVENT DATE: 20170111
